FAERS Safety Report 10141730 (Version 2)
Quarter: 2014Q2

REPORT INFORMATION
  Report Type: Spontaneous
  Country: US (occurrence: US)
  Receive Date: 20140429
  Receipt Date: 20140501
  Transmission Date: 20141212
  Serious: No
  Sender: FDA-Public Use
  Company Number: US-009507513-1404USA014189

PATIENT
  Sex: Female

DRUGS (1)
  1. GRASTEK [Suspect]
     Indication: SEASONAL ALLERGY
     Dosage: 2800 BAU/ONE TABLET
     Route: 060

REACTIONS (3)
  - Tremor [Recovered/Resolved]
  - Ear pruritus [Recovered/Resolved]
  - Flushing [Recovered/Resolved]
